FAERS Safety Report 8577595-X (Version None)
Quarter: 2012Q3

REPORT INFORMATION
  Report Type: 
  Country: None (occurrence: None)
  Receive Date: 20120807
  Receipt Date: 20120803
  Transmission Date: 20120928
  Serious: Yes (Hospitalization)
  Sender: FDA-Public Use
  Company Number: US-AMGEN-KDC395168

PATIENT
  Age: 46 Year
  Sex: Male

DRUGS (11)
  1. LISINOPRIL [Concomitant]
     Dosage: 20 MG, BID
     Route: 048
     Dates: start: 20100202
  2. AMLODIPINE BESYLATE [Concomitant]
     Dosage: 10 MG, QD
     Route: 048
     Dates: start: 20100202
  3. CLONIDINE [Concomitant]
     Dosage: .3 MG, TID
     Route: 048
     Dates: start: 20100202
  4. ANTIBIOTIC NOS [Concomitant]
  5. CINACALCET HYDROCHLORIDE [Suspect]
     Indication: HYPERPARATHYROIDISM SECONDARY
     Dosage: UNK UNK, QD
     Route: 048
     Dates: start: 20070313
  6. LABETALOL HCL [Concomitant]
     Dosage: 200 MG, BID
     Route: 048
     Dates: start: 20100202
  7. RANITIDINE [Concomitant]
     Dosage: 150 MG, BID
     Route: 048
     Dates: start: 20090827
  8. CARVEDILOL [Concomitant]
     Dosage: 25 MG, BID
     Route: 048
     Dates: start: 20090908
  9. MINOXIDIL [Concomitant]
     Dosage: 10 MG, TID
     Dates: start: 20100202
  10. AMLODIPINE/VALSARTAN [Concomitant]
     Dosage: 10 MG, QD
     Route: 048
     Dates: start: 20090827
  11. RENAGEL [Concomitant]
     Dosage: 800 MG, UNK
     Route: 048
     Dates: start: 20090725

REACTIONS (2)
  - DIPLOPIA [None]
  - UPPER RESPIRATORY TRACT INFECTION [None]
